FAERS Safety Report 7963372-7 (Version None)
Quarter: 2011Q4

REPORT INFORMATION
  Report Type: 
  Country: None (occurrence: None)
  Receive Date: 20111205
  Receipt Date: 20111117
  Transmission Date: 20120403
  Serious: Yes (Other)
  Sender: FDA-Public Use
  Company Number: 1000022803

PATIENT
  Age: 29 Year
  Sex: Female
  Weight: 74.84 kg

DRUGS (5)
  1. TRAZODONE (TRAZODONE) (TRAZODONE) [Concomitant]
  2. AMBIEN [Concomitant]
  3. ATIVAN [Concomitant]
  4. VIIBRYD [Suspect]
     Indication: DEPRESSION
     Dosage: 10 MG (10 MG, 1 IN 1 D), ORAL
     Route: 048
     Dates: start: 20110804, end: 20110810
  5. TOPAMAX (TOPIRAMATE) (TOPIRAMATE) [Concomitant]

REACTIONS (2)
  - HAEMOGLOBIN DECREASED [None]
  - HEPATITIS [None]
